FAERS Safety Report 17168811 (Version 1)
Quarter: 2019Q4

REPORT INFORMATION
  Report Type: Spontaneous
  Country: US (occurrence: US)
  Receive Date: 20191217
  Receipt Date: 20191217
  Transmission Date: 20200122
  Serious: Yes (Hospitalization)
  Sender: FDA-Public Use
  Company Number: None

PATIENT
  Age: 35 Year
  Sex: Female
  Weight: 63 kg

DRUGS (1)
  1. BEVACIZUMAB. [Suspect]
     Active Substance: BEVACIZUMAB
     Indication: OVARIAN CANCER
     Dates: start: 20191203

REACTIONS (6)
  - Unresponsive to stimuli [None]
  - Seizure [None]
  - Posterior reversible encephalopathy syndrome [None]
  - Haematuria [None]
  - Abdominal pain [None]
  - Acute kidney injury [None]

NARRATIVE: CASE EVENT DATE: 20191208
